FAERS Safety Report 8600981-6 (Version None)
Quarter: 2012Q3

REPORT INFORMATION
  Report Type: 
  Country: None (occurrence: None)
  Receive Date: 20120817
  Receipt Date: 20120809
  Transmission Date: 20120928
  Serious: Yes (Other)
  Sender: FDA-Public Use
  Company Number: ES-TEVA-352796ISR

PATIENT
  Age: 46 Year
  Sex: Female

DRUGS (1)
  1. COPAXONE [Suspect]
     Indication: MULTIPLE SCLEROSIS

REACTIONS (1)
  - AUTOIMMUNE HEPATITIS [None]
